FAERS Safety Report 20130749 (Version 1)
Quarter: 2021Q4

REPORT INFORMATION
  Report Type: Report from Study
  Country: CN (occurrence: CN)
  Receive Date: 20211130
  Receipt Date: 20211130
  Transmission Date: 20220303
  Serious: Yes (Hospitalization, Other)
  Sender: FDA-Public Use
  Company Number: CN-AUROBINDO-AUR-APL-2020-061328

PATIENT
  Age: 54 Year
  Sex: Female
  Weight: 54.5 kg

DRUGS (30)
  1. EVOMELA [Suspect]
     Active Substance: MELPHALAN HYDROCHLORIDE
     Indication: Plasma cell myeloma
     Dosage: 149 MILLIGRAM
     Route: 065
     Dates: start: 20201004, end: 20201005
  2. GRANULOCYTE COLONY-STIMULATING FACTOR NOS [Concomitant]
     Active Substance: GRANULOCYTE COLONY-STIMULATING FACTOR NOS
     Indication: White blood cell count decreased
     Dosage: 138 MICROGRAM,
     Route: 065
     Dates: start: 20201011, end: 20201020
  3. GRANULOCYTE COLONY-STIMULATING FACTOR NOS [Concomitant]
     Active Substance: GRANULOCYTE COLONY-STIMULATING FACTOR NOS
     Dosage: 150 MICROGRAM, ST IVGTT
     Route: 065
     Dates: start: 20201030, end: 20201030
  4. GRANULOCYTE COLONY-STIMULATING FACTOR NOS [Concomitant]
     Active Substance: GRANULOCYTE COLONY-STIMULATING FACTOR NOS
     Dosage: 150 MICROGRAM, ST IVGTT
     Route: 065
     Dates: start: 20201103, end: 20201103
  5. METOCLOPRAMIDE DEHYDROCHOLATE [Concomitant]
     Indication: Nausea
     Dosage: UNK
     Route: 065
     Dates: start: 20201101, end: 20201101
  6. METOCLOPRAMIDE DEHYDROCHOLATE [Concomitant]
     Indication: Vomiting
     Dosage: UNK
     Route: 065
     Dates: start: 20201108, end: 20201108
  7. FUROSEMIDE [Concomitant]
     Active Substance: FUROSEMIDE
     Indication: Polyuria
     Dosage: UNK
     Route: 042
     Dates: start: 20201102
  8. POTASSIUM CHLORIDE [Concomitant]
     Active Substance: POTASSIUM CHLORIDE
     Indication: Parenteral nutrition
     Dosage: UNK
     Route: 042
     Dates: start: 20201103, end: 20201103
  9. POTASSIUM CHLORIDE [Concomitant]
     Active Substance: POTASSIUM CHLORIDE
     Dosage: UNK
     Route: 042
     Dates: start: 20201106, end: 20201106
  10. POTASSIUM CHLORIDE [Concomitant]
     Active Substance: POTASSIUM CHLORIDE
     Dosage: UNK
     Route: 042
     Dates: start: 20201108, end: 20201108
  11. SODIUM CHLORIDE [Concomitant]
     Active Substance: SODIUM CHLORIDE
     Indication: Parenteral nutrition
     Dosage: UNK
     Route: 042
     Dates: start: 20201103, end: 20201103
  12. MAGNESIUM SULFATE [Concomitant]
     Active Substance: MAGNESIUM SULFATE
     Indication: Parenteral nutrition
     Dosage: UNK
     Route: 042
     Dates: start: 20201103, end: 20201103
  13. MOTILIUM [Concomitant]
     Active Substance: DOMPERIDONE
     Indication: Nausea
     Dosage: UNK
     Route: 065
     Dates: start: 20201105, end: 20201105
  14. MOTILIUM [Concomitant]
     Active Substance: DOMPERIDONE
     Indication: Vomiting
     Dosage: UNK UNK, 3 TIMES A DAY
     Route: 048
     Dates: start: 20201106, end: 20201116
  15. GLYCERIN [Concomitant]
     Active Substance: GLYCERIN
     Indication: Constipation
     Dosage: UNK
     Route: 065
     Dates: start: 20201107, end: 20201107
  16. CALCIUM GLUCONATE [Concomitant]
     Active Substance: CALCIUM GLUCONATE
     Indication: Allergy prophylaxis
     Dosage: UNK
     Route: 042
     Dates: start: 20201107, end: 20201107
  17. CHLORPHENIRAMINE MALEATE [Concomitant]
     Active Substance: CHLORPHENIRAMINE MALEATE
     Indication: Allergy prophylaxis
     Dosage: UNK
     Route: 048
     Dates: start: 20201107, end: 20201107
  18. CALTRATE [Concomitant]
     Active Substance: CALCIUM CARBONATE
     Indication: Mineral supplementation
     Dosage: UNK
     Route: 065
     Dates: start: 20201108, end: 20201108
  19. POTASSIUM CHLORIDE\SODIUM CHLORIDE [Concomitant]
     Active Substance: POTASSIUM CHLORIDE\SODIUM CHLORIDE
     Indication: Mineral supplementation
     Dosage: VIA INFUSON PUMP
     Route: 065
     Dates: start: 20201111, end: 20201111
  20. NIFEDIPINE [Concomitant]
     Active Substance: NIFEDIPINE
     Indication: Hypertension
     Dosage: UNK
     Route: 060
     Dates: start: 20201112, end: 20201112
  21. OMEPRAZOLE SODIUM [Concomitant]
     Active Substance: OMEPRAZOLE SODIUM
     Indication: Gastric disorder
     Dosage: UNK, ONCE A DAY
     Route: 042
     Dates: start: 20201102, end: 20201111
  22. ESTAZOLAM [Concomitant]
     Active Substance: ESTAZOLAM
     Indication: Insomnia
     Dosage: UNK, ONCE A DAY
     Route: 048
     Dates: start: 20201105, end: 20201113
  23. DIOVAN [Concomitant]
     Active Substance: VALSARTAN
     Indication: Hypertension
     Dosage: UNK, ONCE A DAY
     Route: 048
     Dates: start: 20201113, end: 20201116
  24. SODIUM GLYCEROPHOSPHATE [Concomitant]
     Active Substance: SODIUM GLYCEROPHOSPHATE
     Indication: Supplementation therapy
     Dosage: UNK
  25. TORSEMIDE [Concomitant]
     Active Substance: TORSEMIDE
     Indication: Polyuria
     Dosage: UNK
     Route: 065
  26. TROPISETRON HYDROCHLORIDE [Concomitant]
     Active Substance: TROPISETRON HYDROCHLORIDE
     Indication: Nausea
     Dosage: UNK
     Route: 042
     Dates: start: 20201102, end: 20201107
  27. TROPISETRON HYDROCHLORIDE [Concomitant]
     Active Substance: TROPISETRON HYDROCHLORIDE
     Indication: Vomiting
  28. HEPARIN CALCIUM [Concomitant]
     Active Substance: HEPARIN CALCIUM
     Indication: Thrombosis
     Dosage: 5000 INTERNATIONAL UNIT
     Route: 065
     Dates: start: 20201111, end: 20201113
  29. HEPARIN CALCIUM [Concomitant]
     Active Substance: HEPARIN CALCIUM
     Dosage: 5000 INTERNATIONAL UNIT
     Route: 065
     Dates: start: 20201113, end: 20201116
  30. HEPARIN CALCIUM [Concomitant]
     Active Substance: HEPARIN CALCIUM
     Dosage: UNK

REACTIONS (17)
  - Pyrexia [Recovered/Resolved]
  - C-reactive protein increased [Recovered/Resolved]
  - Constipation [Recovered/Resolved]
  - Hypokalaemia [Recovered/Resolved]
  - Hypophosphataemia [Recovered/Resolved]
  - Hyponatraemia [Recovered/Resolved]
  - Nausea [Recovered/Resolved]
  - Diarrhoea [Recovered/Resolved]
  - Hyperglycaemia [Unknown]
  - Vomiting [Recovered/Resolved]
  - Upper respiratory tract infection [Recovered/Resolved]
  - Stomatitis [Recovered/Resolved]
  - Dysphagia [Recovered/Resolved]
  - Aspartate aminotransferase increased [Recovered/Resolved]
  - Blood lactate dehydrogenase increased [Recovered/Resolved]
  - Decreased appetite [Recovered/Resolved]
  - Insomnia [Recovered/Resolved]

NARRATIVE: CASE EVENT DATE: 20201005
